FAERS Safety Report 18676603 (Version 1)
Quarter: 2020Q4

REPORT INFORMATION
  Report Type: Spontaneous
  Country: US (occurrence: US)
  Receive Date: 20201228
  Receipt Date: 20201228
  Transmission Date: 20210114
  Serious: No
  Sender: FDA-Public Use
  Company Number: None

PATIENT
  Age: 64 Year
  Sex: Female

DRUGS (1)
  1. HUMIRA [Suspect]
     Active Substance: ADALIMUMAB
     Indication: RHEUMATOID ARTHRITIS
     Route: 058
     Dates: start: 20201104

REACTIONS (5)
  - Pain [None]
  - Gait inability [None]
  - Drug hypersensitivity [None]
  - Arthralgia [None]
  - Skin warm [None]

NARRATIVE: CASE EVENT DATE: 202012
